FAERS Safety Report 13051305 (Version 1)
Quarter: 2016Q4

REPORT INFORMATION
  Report Type: Spontaneous
  Country: US (occurrence: US)
  Receive Date: 20161221
  Receipt Date: 20161221
  Transmission Date: 20170207
  Serious: Yes (Hospitalization, Other)
  Sender: FDA-Public Use
  Company Number: US-MYLANLABS-2016M1056400

PATIENT

DRUGS (6)
  1. CICLOSPORIN [Concomitant]
     Active Substance: CYCLOSPORINE
     Indication: PROPHYLAXIS AGAINST GRAFT VERSUS HOST DISEASE
     Route: 065
  2. MYCOPHENOLATE MOFETIL. [Concomitant]
     Active Substance: MYCOPHENOLATE MOFETIL
     Indication: PROPHYLAXIS AGAINST GRAFT VERSUS HOST DISEASE
     Route: 065
  3. FLUDARABINE [Suspect]
     Active Substance: FLUDARABINE PHOSPHATE
     Indication: PRODUCT USED FOR UNKNOWN INDICATION
     Dosage: 30 MG/M 2 FROM DAY 5 TO DAY 2 PRIOR TO THE T
     Route: 065
  4. MELPHALAN [Suspect]
     Active Substance: MELPHALAN
     Indication: PRODUCT USED FOR UNKNOWN INDICATION
     Dosage: 60 MG/M 2 MELPHALAN FROM DAY 4 TO DAY 2 PRIOR TO THE TRANSPLANTATION
     Route: 065
  5. BUSULFAN. [Suspect]
     Active Substance: BUSULFAN
     Indication: PRODUCT USED FOR UNKNOWN INDICATION
     Dosage: AT EVERY 6 HOURS FOR A TOTAL OF 16 DOSES AT 0.8 MG/KG FROM DAY 9 TO DAY 6 BEFORE THE TRANSPLANTATION
     Route: 042
  6. FOSCARNET [Suspect]
     Active Substance: FOSCARNET
     Indication: HERPES SIMPLEX
     Route: 065

REACTIONS (7)
  - Respiratory distress [Recovered/Resolved]
  - Weight increased [Recovered/Resolved]
  - Herpes simplex [Recovered/Resolved]
  - Hepatomegaly [Recovered/Resolved]
  - Fluid retention [Recovered/Resolved]
  - Stomatitis [Recovered/Resolved]
  - Bacteraemia [Recovered/Resolved]
